FAERS Safety Report 21602405 (Version 1)
Quarter: 2022Q4

REPORT INFORMATION
  Report Type: Spontaneous
  Country: US (occurrence: None)
  Receive Date: 20221115
  Receipt Date: 20221115
  Transmission Date: 20230112
  Serious: No
  Sender: FDA-Public Use
  Company Number: None

PATIENT
  Age: 35 Year
  Sex: Female
  Weight: 81.9 kg

DRUGS (10)
  1. DULOXETINE [Suspect]
     Active Substance: DULOXETINE
     Indication: Product used for unknown indication
     Dosage: FREQUENCY : AT BEDTIME;?
     Route: 048
     Dates: start: 20221018
  2. XYWAV [Concomitant]
     Active Substance: CALCIUM OXYBATE\MAGNESIUM OXYBATE\POTASSIUM OXYBATE\SODIUM OXYBATE
  3. CLOMIPRAMINE [Concomitant]
     Active Substance: CLOMIPRAMINE
  4. LEVOTHYROXINE [Concomitant]
     Active Substance: LEVOTHYROXINE
  5. cave [Concomitant]
  6. LINZESS [Concomitant]
     Active Substance: LINACLOTIDE
  7. SYMBICORT [Concomitant]
     Active Substance: BUDESONIDE\FORMOTEROL FUMARATE DIHYDRATE
  8. DEVICE [Concomitant]
     Active Substance: DEVICE
  9. VITAMIN D3 [Concomitant]
     Active Substance: CHOLECALCIFEROL
  10. FLONASE [Concomitant]
     Active Substance: FLUTICASONE PROPIONATE

REACTIONS (5)
  - Product substitution issue [None]
  - Pain [None]
  - Depression [None]
  - Mood swings [None]
  - Drug ineffective [None]

NARRATIVE: CASE EVENT DATE: 20221107
